FAERS Safety Report 25394443 (Version 3)
Quarter: 2025Q3

REPORT INFORMATION
  Report Type: Report from Study
  Country: CA (occurrence: CA)
  Receive Date: 20250604
  Receipt Date: 20250917
  Transmission Date: 20251021
  Serious: Yes (Hospitalization, Other)
  Sender: ROCHE
  Company Number: CA-ROCHE-10000284612

PATIENT
  Age: 89 Year
  Sex: Female
  Weight: 72 kg

DRUGS (9)
  1. ACTEMRA [Suspect]
     Active Substance: TOCILIZUMAB
     Indication: Rheumatoid arthritis
     Dosage: DRUG DOSE FIRST ADMINISTERED IS 576 MG MILLIGRAM(S)
     Route: 042
     Dates: start: 20130604, end: 20140224
  2. ACTEMRA [Suspect]
     Active Substance: TOCILIZUMAB
     Dosage: DRUG DOSE FIRST ADMINISTERED IS 288 MG MILLIGRAM(S)
     Route: 042
     Dates: start: 20140410, end: 20140625
  3. ACTEMRA [Suspect]
     Active Substance: TOCILIZUMAB
     Dosage: DRUG DOSE FIRST ADMINISTERED IS 434 MG MILLIGRAM(S)
     Route: 042
     Dates: start: 20140811, end: 20140811
  4. ACTEMRA [Suspect]
     Active Substance: TOCILIZUMAB
     Dosage: DRUG DOSE FIRST ADMINISTERED IS 430 MG MILLIGRAM(S)
     Route: 042
     Dates: start: 20140910
  5. CALCIUM [Concomitant]
     Active Substance: CALCIUM
  6. MUCINEX [Concomitant]
     Active Substance: GUAIFENESIN
  7. PREDNISONE [Concomitant]
     Active Substance: PREDNISONE
  8. VITAMIN C [Concomitant]
     Active Substance: ASCORBIC ACID
  9. VITAMIN D [Concomitant]
     Active Substance: VITAMIN D NOS

REACTIONS (7)
  - Head injury [Unknown]
  - Back pain [Unknown]
  - Skin discolouration [Unknown]
  - Pulmonary thrombosis [Unknown]
  - Fall [Unknown]
  - Loss of consciousness [Unknown]
  - Heart rate decreased [Unknown]

NARRATIVE: CASE EVENT DATE: 20250101
